FAERS Safety Report 7985620-X (Version None)
Quarter: 2011Q4

REPORT INFORMATION
  Report Type: 
  Country: None (occurrence: None)
  Receive Date: 20111216
  Receipt Date: 20111209
  Transmission Date: 20120403
  Serious: Yes (Hospitalization)
  Sender: FDA-Public Use
  Company Number: IT-BRISTOL-MYERS SQUIBB COMPANY-16285108

PATIENT
  Age: 58 Year
  Sex: Male

DRUGS (4)
  1. LOPERAMIDE HCL [Concomitant]
     Dates: start: 20111028, end: 20111028
  2. IPILIMUMAB [Suspect]
     Indication: MALIGNANT MELANOMA
     Dosage: 6 VIALS.
     Route: 042
     Dates: start: 20110922, end: 20111103
  3. PANTOPRAZOLE [Concomitant]
     Dates: start: 20110228
  4. BISOPROLOL FUMARATE [Concomitant]
     Dosage: BISOPROLOL SANDOZ
     Dates: start: 20060101

REACTIONS (1)
  - TACHYCARDIA PAROXYSMAL [None]
